FAERS Safety Report 20817759 (Version 2)
Quarter: 2023Q2

REPORT INFORMATION
  Report Type: Spontaneous
  Country: FR (occurrence: FR)
  Receive Date: 20220512
  Receipt Date: 20230601
  Transmission Date: 20230722
  Serious: Yes (Other)
  Sender: FDA-Public Use
  Company Number: None

PATIENT
  Age: 66 Year
  Sex: Male
  Weight: 75 kg

DRUGS (5)
  1. LAMIVUDINE [Suspect]
     Active Substance: LAMIVUDINE
     Indication: HIV infection
     Dosage: UNIT DOSE: 300 MG, FREQUENCY TIME : 1 DAY, DURATION : 4 MONTH
     Route: 048
     Dates: start: 202010, end: 202102
  2. PRAVASTATIN SODIUM [Suspect]
     Active Substance: PRAVASTATIN SODIUM
     Indication: Dyslipidaemia
     Dosage: UNIT DOSE: 10 MG, FREQUENCY TIME : 1 DAY, DURATION : 2 YEARS
     Route: 048
     Dates: start: 2019, end: 202102
  3. INTELENCE [Suspect]
     Active Substance: ETRAVIRINE
     Indication: HIV infection
     Dosage: 400 MILLIGRAM DAILY; 200MG 1 CPX2/D,
     Route: 048
     Dates: start: 202010, end: 202102
  4. APTIVUS [Suspect]
     Active Substance: TIPRANAVIR
     Indication: HIV infection
     Dosage: 1 GRAM DAILY; 250MG 2 CAPSULES TWICE A DAY
     Route: 048
     Dates: start: 202010, end: 202102
  5. NORVIR [Suspect]
     Active Substance: RITONAVIR
     Indication: HIV infection
     Dosage: 400 MILLIGRAM DAILY; 100MG 2 TAB X2/D
     Route: 048
     Dates: start: 201701, end: 202102

REACTIONS (1)
  - Hepatic cytolysis [Recovered/Resolved]

NARRATIVE: CASE EVENT DATE: 20220101
